FAERS Safety Report 8298383-8 (Version None)
Quarter: 2012Q2

REPORT INFORMATION
  Report Type: 
  Country: None (occurrence: None)
  Receive Date: 20120419
  Receipt Date: 20120417
  Transmission Date: 20120825
  Serious: Yes (Life-Threatening, Hospitalization, Disabling, Other)
  Sender: FDA-Public Use
  Company Number: JP-B.I. PHARMACEUTICALS,INC./RIDGEFIELD-2012-BP-04139NB

PATIENT
  Age: 69 Year
  Sex: Female
  Weight: 40 kg

DRUGS (11)
  1. PRADAXA [Suspect]
     Indication: ATRIAL FIBRILLATION
     Dosage: 220 MG
     Route: 048
     Dates: start: 20120217, end: 20120303
  2. DEPAS [Concomitant]
     Indication: INSOMNIA
     Dosage: 1 MG
     Route: 048
     Dates: start: 20080813
  3. LANSOPRAZOLE [Concomitant]
     Indication: GASTRITIS
     Dosage: 15 MG
     Route: 048
     Dates: start: 20101015
  4. ALDACTONE [Concomitant]
     Indication: CARDIAC FAILURE CHRONIC
     Dosage: 25 MG
     Route: 048
     Dates: start: 20091225
  5. LIVACT [Concomitant]
     Indication: HEPATIC FAILURE
     Dosage: 12.45 G
     Route: 048
     Dates: start: 20100930
  6. LACTULOSE [Concomitant]
     Indication: HEPATIC FAILURE
     Dosage: 30 ML
     Route: 048
     Dates: start: 20111212
  7. LASIX [Concomitant]
     Indication: CARDIAC FAILURE CHRONIC
     Dosage: 20 MG
     Route: 048
     Dates: start: 20091225
  8. CARVEDILOL [Concomitant]
     Indication: CARDIAC FAILURE CHRONIC
     Dosage: 1.25 MG
     Route: 048
     Dates: start: 20101014
  9. TEGRETOL [Concomitant]
     Indication: EPILEPSY
     Dosage: 10 MG
     Route: 048
     Dates: start: 20110411
  10. KEPPRA [Concomitant]
     Indication: EPILEPSY
     Dosage: 2000 MG
     Route: 048
     Dates: start: 20111212
  11. NOVORAPID [Concomitant]
     Indication: DIABETES MELLITUS
     Dosage: 25 U
     Route: 058
     Dates: start: 20110823

REACTIONS (2)
  - ALTERED STATE OF CONSCIOUSNESS [None]
  - CEREBRAL HAEMORRHAGE [None]
